FAERS Safety Report 22768311 (Version 3)
Quarter: 2024Q1

REPORT INFORMATION
  Report Type: Spontaneous
  Country: US (occurrence: US)
  Receive Date: 20230731
  Receipt Date: 20240112
  Transmission Date: 20240410
  Serious: No
  Sender: FDA-Public Use
  Company Number: US-SA-SAC20230727000372

PATIENT
  Age: 63 Year
  Sex: Female

DRUGS (5)
  1. DUPILUMAB [Suspect]
     Active Substance: DUPILUMAB
     Indication: Chronic rhinosinusitis with nasal polyps
     Dosage: 6300 MG, 1X
     Route: 058
     Dates: start: 202305, end: 202305
  2. DUPILUMAB [Suspect]
     Active Substance: DUPILUMAB
     Indication: Asthma
     Dosage: 300 MG, QOW
     Route: 058
     Dates: start: 2023
  3. DUPILUMAB [Suspect]
     Active Substance: DUPILUMAB
     Indication: Hypersensitivity
     Dosage: 300 MG, Q3W
     Route: 058
     Dates: start: 2023
  4. INFLUENZA VIRUS VACCINE [Concomitant]
     Active Substance: INFLUENZA VIRUS VACCINE
  5. COVID-19 VACCINE [Concomitant]

REACTIONS (12)
  - Nasal congestion [Recovered/Resolved]
  - Nasal obstruction [Unknown]
  - Pain [Unknown]
  - Anosmia [Recovered/Resolved]
  - Rhinorrhoea [Recovered/Resolved]
  - Condition aggravated [Recovered/Resolved]
  - Ocular hyperaemia [Recovered/Resolved]
  - Vision blurred [Unknown]
  - Arthralgia [Unknown]
  - Eye pruritus [Recovered/Resolved]
  - Inappropriate schedule of product administration [Unknown]
  - Product use in unapproved indication [Unknown]

NARRATIVE: CASE EVENT DATE: 20230501
